FAERS Safety Report 9792487 (Version 1)
Quarter: 2014Q1

REPORT INFORMATION
  Report Type: Spontaneous
  Country: IE (occurrence: IE)
  Receive Date: 20140102
  Receipt Date: 20140102
  Transmission Date: 20141002
  Serious: Yes (Disabling)
  Sender: FDA-Public Use
  Company Number: IE-SA-2013SA134133

PATIENT
  Sex: Female

DRUGS (1)
  1. SELSUN SHAMPOO [Suspect]
     Indication: FUNGAL SKIN INFECTION
     Route: 061
     Dates: start: 201312, end: 201312

REACTIONS (5)
  - Eye pain [Recovered/Resolved]
  - Off label use [Unknown]
  - Blindness [Recovered/Resolved]
  - Vision blurred [Not Recovered/Not Resolved]
  - Eye irritation [Recovered/Resolved]
